FAERS Safety Report 5850828-6 (Version None)
Quarter: 2008Q3

REPORT INFORMATION
  Report Type: 
  Country: None (occurrence: None)
  Receive Date: 20080818
  Receipt Date: 20080708
  Transmission Date: 20090109
  Serious: Yes (Other)
  Sender: FDA-Public Use
  Company Number: PHHY2008GB05300

PATIENT
  Sex: Female

DRUGS (4)
  1. VISCOTEARS (NVO) (CARBOMER) EYE GEL NOS [Suspect]
     Indication: DRY EYE
     Dosage: TOPICAL OPHTH.
     Dates: start: 20070830, end: 20080325
  2. VISCOTEARS (NVO) (CARBOMER) EYE GEL NOS [Suspect]
     Indication: DRY EYE
     Dosage: TOPICAL OPHTH.
     Dates: start: 20080325
  3. TIMOLOL MALEATE [Suspect]
     Dates: start: 20070101
  4. LIQUIFILM (POLYVINYL ALCOHOL) [Concomitant]

REACTIONS (3)
  - ANXIETY [None]
  - EYE MOVEMENT DISORDER [None]
  - VISUAL IMPAIRMENT [None]
